FAERS Safety Report 11169388 (Version 1)
Quarter: 2015Q2

REPORT INFORMATION
  Report Type: Spontaneous
  Country: US (occurrence: US)
  Receive Date: 20150605
  Receipt Date: 20150605
  Transmission Date: 20150821
  Serious: Yes (Other)
  Sender: FDA-Public Use
  Company Number: US-GLAXOSMITHKLINE INC.-US2015GSK077164

PATIENT
  Age: 7 Year
  Sex: Female

DRUGS (5)
  1. TRILEPTAL [Suspect]
     Active Substance: OXCARBAZEPINE
     Indication: SEIZURE
  2. KEPPRA [Suspect]
     Active Substance: LEVETIRACETAM
     Indication: SEIZURE
  3. ZONISAMIDE. [Concomitant]
     Active Substance: ZONISAMIDE
  4. VIMPAT [Suspect]
     Active Substance: LACOSAMIDE
     Indication: SEIZURE
     Dosage: 150 MG, BID
  5. LAMICTAL [Suspect]
     Active Substance: LAMOTRIGINE
     Indication: SEIZURE

REACTIONS (1)
  - Seizure [Recovered/Resolved]
